FAERS Safety Report 16007488 (Version 2)
Quarter: 2019Q2

REPORT INFORMATION
  Report Type: Spontaneous
  Country: JP (occurrence: JP)
  Receive Date: 20190226
  Receipt Date: 20190522
  Transmission Date: 20190711
  Serious: Yes (Other)
  Sender: FDA-Public Use
  Company Number: JP-PFIZER INC-2019079035

PATIENT
  Sex: Male

DRUGS (1)
  1. ZITHROMAC [Suspect]
     Active Substance: AZITHROMYCIN DIHYDRATE
     Dosage: UNK
     Route: 048

REACTIONS (3)
  - Hypoaesthesia [Recovered/Resolved with Sequelae]
  - Subacute combined cord degeneration [Recovered/Resolved with Sequelae]
  - Taste disorder [Recovered/Resolved]
